FAERS Safety Report 9570997 (Version 1)
Quarter: 2013Q3

REPORT INFORMATION
  Report Type: Spontaneous
  Country: US (occurrence: None)
  Receive Date: 20130927
  Receipt Date: 20130927
  Transmission Date: 20140515
  Serious: Yes (Other)
  Sender: FDA-Public Use
  Company Number: 2013P1019395

PATIENT
  Age: 47 Year
  Sex: Female

DRUGS (3)
  1. LAMOTRIGINE [Suspect]
     Indication: CONVULSION
     Route: 048
     Dates: start: 20130822
  2. TOPIRAMATE [Concomitant]
  3. ZONISAMIDE [Concomitant]

REACTIONS (2)
  - Convulsion [None]
  - Product substitution issue [None]
